FAERS Safety Report 6559972-1 (Version None)
Quarter: 2010Q1

REPORT INFORMATION
  Report Type: 
  Country: None (occurrence: None)
  Receive Date: 20100129
  Receipt Date: 20091002
  Transmission Date: 20100710
  Serious: No
  Sender: FDA-Public Use
  Company Number: US-ABBOTT-09P-163-0597819-00

PATIENT
  Sex: Female
  Weight: 81.266 kg

DRUGS (9)
  1. HUMIRA [Suspect]
     Indication: RHEUMATOID ARTHRITIS
     Route: 058
     Dates: start: 20090601
  2. ASPIRIN [Concomitant]
     Indication: CARDIOVASCULAR EVENT PROPHYLAXIS
     Route: 048
  3. BUMETANIDE [Concomitant]
     Indication: DRUG USE FOR UNKNOWN INDICATION
     Route: 048
  4. COUMADIN [Concomitant]
     Indication: ANTICOAGULANT THERAPY
     Route: 048
  5. AMIODARONE [Concomitant]
     Indication: PALPITATIONS
     Route: 048
  6. ZOLPIDEM [Concomitant]
     Indication: INSOMNIA
     Route: 048
  7. MULTI-VITAMIN [Concomitant]
     Indication: MEDICAL DIET
  8. COMBIVENT [Concomitant]
     Indication: ASTHMA
     Route: 055
  9. ADVAIR DISC [Concomitant]
     Indication: ASTHMA
     Dosage: 500/50 MG TWICE DAILY
     Route: 055

REACTIONS (2)
  - DRUG EFFECT DECREASED [None]
  - PAIN [None]
